FAERS Safety Report 5874675-4 (Version None)
Quarter: 2008Q3

REPORT INFORMATION
  Report Type: 
  Country: None (occurrence: None)
  Receive Date: 20080902
  Receipt Date: 20080825
  Transmission Date: 20090109
  Serious: Yes (Other)
  Sender: FDA-Public Use
  Company Number: GXKR2008PT08144

PATIENT
  Age: 60 Year
  Sex: Female

DRUGS (14)
  1. GABAPENTIN [Suspect]
     Indication: PAIN
     Dosage: 100 MG, QD, ORAL
     Route: 048
     Dates: start: 20080719, end: 20080720
  2. NIFEDIPINE [Concomitant]
  3. DIPYRIDAMOLE [Concomitant]
  4. ACETYLSALICYLIC ACID SRT [Concomitant]
  5. ROSUVASTATIN CALCIUM (ROSUVASTATIN CALCIUM) [Concomitant]
  6. GLIMEPIRIDE [Concomitant]
  7. LEVOTHYROXINE SODIUM [Concomitant]
  8. METHYLDOPA [Concomitant]
  9. IRBESARTAN [Concomitant]
  10. HYDROCHOROTHIAZIDE (HYDROCHLOROTHIAZIDE) [Concomitant]
  11. CARVEDILOL [Concomitant]
  12. ISOSORBIDE MONONITRATE [Concomitant]
  13. METFORMIN HCL [Concomitant]
  14. FLUOXETINE HCL [Concomitant]

REACTIONS (5)
  - ASTHENIA [None]
  - HYPERGLYCAEMIA [None]
  - HYPOTENSION [None]
  - SOMNOLENCE [None]
  - SPEECH DISORDER [None]
